FAERS Safety Report 8073618-5 (Version None)
Quarter: 2011Q4

REPORT INFORMATION
  Report Type: 
  Country: None (occurrence: None)
  Receive Date: 20111221
  Receipt Date: 20110124
  Transmission Date: 20120403
  Serious: Yes (Hospitalization, Other)
  Sender: FDA-Public Use
  Company Number: PHEH2009US17932

PATIENT
  Sex: Male

DRUGS (1)
  1. EXJADE [Suspect]
     Indication: MYELODYSPLASTIC SYNDROME
     Dosage: 1500 MG, QD, ORAL, 500 MG, ORAL
     Route: 048
     Dates: start: 20091007, end: 20091125

REACTIONS (4)
  - INFECTION [None]
  - WHITE BLOOD CELL COUNT INCREASED [None]
  - DIZZINESS [None]
  - DEAFNESS [None]
